FAERS Safety Report 4524418-1 (Version None)
Quarter: 2004Q4

REPORT INFORMATION
  Report Type: 
  Country: None (occurrence: None)
  Receive Date: 20041119
  Receipt Date: 20040310
  Transmission Date: 20050328
  Serious: No
  Sender: FDA-Public Use
  Company Number: MSER20040007

PATIENT
  Age: 53 Year
  Sex: Female

DRUGS (3)
  1. MORPHINE SULFATE-ER  100 MG [Suspect]
     Indication: PAIN
     Dosage: PO
     Route: 048
  2. ENDOCET 7.5/325 MG ENDO [Suspect]
     Indication: PAIN
     Dosage: PO
     Route: 048
  3. ACETAMINOPHEN AND HYDROCODONE BITARTRATE [Suspect]
     Indication: PAIN

REACTIONS (1)
  - DEPRESSED LEVEL OF CONSCIOUSNESS [None]
